FAERS Safety Report 21180420 (Version 2)
Quarter: 2022Q3

REPORT INFORMATION
  Report Type: Spontaneous
  Country: DE (occurrence: DE)
  Receive Date: 20220806
  Receipt Date: 20220817
  Transmission Date: 20221027
  Serious: Yes (Death, Life-Threatening, Hospitalization, Other)
  Sender: FDA-Public Use
  Company Number: DE-Accord-272215

PATIENT
  Age: 54 Year
  Sex: Male

DRUGS (12)
  1. METHOTREXATE [Suspect]
     Active Substance: METHOTREXATE
     Indication: Immunosuppression
  2. BUDESONIDE [Suspect]
     Active Substance: BUDESONIDE
     Indication: Immunosuppression
  3. PREDNISOLONE [Suspect]
     Active Substance: PREDNISOLONE
     Indication: Immunosuppression
  4. THYMOCYTE IMMUNE GLOBULIN NOS [Suspect]
     Active Substance: THYMOCYTE IMMUNE GLOBULIN NOS
     Indication: Product used for unknown indication
  5. ALEMTUZUMAB [Suspect]
     Active Substance: ALEMTUZUMAB
     Indication: Product used for unknown indication
  6. RUXOLITINIB [Concomitant]
     Active Substance: RUXOLITINIB
     Indication: Plasma cell myeloma
  7. ETANERCEPT [Concomitant]
     Active Substance: ETANERCEPT
  8. ECULIZUMAB [Concomitant]
     Active Substance: ECULIZUMAB
     Indication: Thrombotic microangiopathy
  9. CYCLOSPORINE [Concomitant]
     Active Substance: CYCLOSPORINE
     Indication: Graft versus host disease
  10. TACROLIMUS [Concomitant]
     Active Substance: TACROLIMUS
  11. EVEROLIMUS [Concomitant]
     Active Substance: EVEROLIMUS
     Indication: Graft versus host disease
  12. MYCOPHENOLATE MOFETIL [Concomitant]
     Active Substance: MYCOPHENOLATE MOFETIL
     Indication: Graft versus host disease

REACTIONS (9)
  - Adenoviral hepatitis [Fatal]
  - Pneumonia adenoviral [Fatal]
  - Pulmonary embolism [Fatal]
  - Haemorrhage [Fatal]
  - Cardiopulmonary failure [Fatal]
  - Acute hepatic failure [Fatal]
  - Coagulopathy [Fatal]
  - Lactic acidosis [Fatal]
  - Multiple organ dysfunction syndrome [Fatal]
